FAERS Safety Report 4317875-7 (Version None)
Quarter: 2004Q1

REPORT INFORMATION
  Report Type: 
  Country: None (occurrence: None)
  Receive Date: 20040316
  Receipt Date: 20030407
  Transmission Date: 20041129
  Serious: Yes (Hospitalization, Disabling)
  Sender: FDA-Public Use
  Company Number: WAES 0304USA00814

PATIENT
  Age: 56 Year
  Sex: Male
  Weight: 76 kg

DRUGS (7)
  1. AMOXICILLIN [Concomitant]
  2. HYDROCODONE BITARTRATE [Concomitant]
     Indication: DENTAL OPERATION
  3. LORAZEPAM [Concomitant]
  4. VIOXX [Suspect]
     Indication: PERIODONTAL OPERATION
     Route: 048
     Dates: start: 20010111, end: 20010117
  5. VIOXX [Suspect]
     Route: 048
     Dates: start: 20010201, end: 20010207
  6. VIOXX [Suspect]
     Indication: TOOTH EXTRACTION
     Route: 048
     Dates: start: 20010111, end: 20010117
  7. VIOXX [Suspect]
     Route: 048
     Dates: start: 20010201, end: 20010207

REACTIONS (37)
  - ACTIVATED PARTIAL THROMBOPLASTIN TIME PROLONGED [None]
  - ANEURYSM [None]
  - AORTIC ATHEROSCLEROSIS [None]
  - AORTIC DISSECTION [None]
  - AORTIC EMBOLUS [None]
  - ARTERY DISSECTION [None]
  - ASTHENIA [None]
  - ATELECTASIS [None]
  - CHOLELITHIASIS [None]
  - COGNITIVE DISORDER [None]
  - DEPRESSION [None]
  - DISTURBANCE IN ATTENTION [None]
  - EMOTIONAL DISTRESS [None]
  - ENTEROBACTER PNEUMONIA [None]
  - GASTROOESOPHAGEAL REFLUX DISEASE [None]
  - GENERAL PHYSICAL CONDITION ABNORMAL [None]
  - HAEMATOCRIT DECREASED [None]
  - HAEMOGLOBIN DECREASED [None]
  - HYPERTENSION [None]
  - ILIAC ARTERY THROMBOSIS [None]
  - IMPAIRED HEALING [None]
  - INCISION SITE COMPLICATION [None]
  - IRRITABILITY [None]
  - KELOID SCAR [None]
  - LOSS OF EMPLOYMENT [None]
  - PAIN [None]
  - PHARYNGOLARYNGEAL PAIN [None]
  - PLATELET COUNT INCREASED [None]
  - PNEUMONIA [None]
  - POST PROCEDURAL COMPLICATION [None]
  - PROTHROMBIN TIME PROLONGED [None]
  - RENAL CYST [None]
  - SELF ESTEEM DECREASED [None]
  - SEXUAL DYSFUNCTION [None]
  - SOFT TISSUE HAEMORRHAGE [None]
  - TROPONIN I INCREASED [None]
  - VASCULAR INJURY [None]
